FAERS Safety Report 9425554 (Version 1)
Quarter: 2013Q3

REPORT INFORMATION
  Report Type: Spontaneous
  Country: US (occurrence: US)
  Receive Date: 20130729
  Receipt Date: 20130729
  Transmission Date: 20140515
  Serious: No
  Sender: FDA-Public Use
  Company Number: US-MYLANLABS-2012S1021643

PATIENT
  Age: 56 Year
  Sex: Female
  Weight: 113.4 kg

DRUGS (5)
  1. LEVOTHYROXINE SODIUM TABLETS, USP [Suspect]
     Indication: HYPOTHYROIDISM
  2. LATUDA [Suspect]
     Indication: MAJOR DEPRESSION
     Route: 048
     Dates: start: 201110, end: 20120307
  3. LATUDA [Suspect]
     Indication: BORDERLINE PERSONALITY DISORDER
     Route: 048
     Dates: start: 201110, end: 20120307
  4. CYMBALTA [Concomitant]
     Dates: start: 20110623, end: 20120307
  5. ALPRAZOLAM [Concomitant]
     Dates: start: 20110817

REACTIONS (1)
  - Tardive dyskinesia [Recovered/Resolved]
